FAERS Safety Report 6835879-7 (Version None)
Quarter: 2010Q3

REPORT INFORMATION
  Report Type: 
  Country: None (occurrence: None)
  Receive Date: 20100713
  Receipt Date: 20100709
  Transmission Date: 20110219
  Serious: Yes (Hospitalization)
  Sender: FDA-Public Use
  Company Number: A0869447A

PATIENT
  Age: 74 Year
  Sex: Female

DRUGS (4)
  1. NICODERM CQ [Suspect]
     Route: 062
  2. METFORMIN HCL [Concomitant]
  3. LIPITOR [Concomitant]
  4. GLIPIZIDE [Concomitant]

REACTIONS (2)
  - ANGIOEDEMA [None]
  - SWOLLEN TONGUE [None]
